FAERS Safety Report 4612340-1 (Version None)
Quarter: 2005Q1

REPORT INFORMATION
  Report Type: 
  Country: None (occurrence: None)
  Receive Date: 20050308
  Receipt Date: 20050124
  Transmission Date: 20050727
  Serious: Yes (Other)
  Sender: FDA-Public Use
  Company Number: 2004UW23849

PATIENT
  Age: 57 Year
  Sex: Male
  Weight: 79.8331 kg

DRUGS (1)
  1. CRESTOR [Suspect]
     Indication: HYPERCHOLESTEROLAEMIA
     Dosage: 10 MG QD PO
     Route: 048
     Dates: start: 20040830

REACTIONS (6)
  - ARTHRALGIA [None]
  - CHEST PAIN [None]
  - FATIGUE [None]
  - JOINT SWELLING [None]
  - MYALGIA [None]
  - STRESS [None]
